FAERS Safety Report 7548010-X (Version None)
Quarter: 2011Q2

REPORT INFORMATION
  Report Type: 
  Country: None (occurrence: None)
  Receive Date: 20110524
  Receipt Date: 20110128
  Transmission Date: 20111010
  Serious: No
  Sender: FDA-Public Use
  Company Number: 026559

PATIENT
  Sex: Female
  Weight: 72.6 kg

DRUGS (3)
  1. METHOTREXATE [Concomitant]
  2. CIMZIA [Suspect]
     Indication: RHEUMATOID ARTHRITIS
     Dosage: 2 SHOTS SUBCUTANEOUS
     Route: 058
     Dates: start: 20100701
  3. FOLIC ACID [Concomitant]

REACTIONS (3)
  - IRRITABILITY [None]
  - HEADACHE [None]
  - HYPERTENSION [None]
